FAERS Safety Report 22252541 (Version 4)
Quarter: 2023Q2

REPORT INFORMATION
  Report Type: Spontaneous
  Country: JP (occurrence: JP)
  Receive Date: 20230426
  Receipt Date: 20230621
  Transmission Date: 20230721
  Serious: Yes (Other)
  Sender: FDA-Public Use
  Company Number: JP-MTPC-MTPC2023-0010553

PATIENT
  Age: 69 Year
  Sex: Male

DRUGS (1)
  1. REMICADE [Suspect]
     Active Substance: INFLIXIMAB
     Indication: Behcet^s syndrome
     Dosage: UNK UNK, Q8WEEKS
     Route: 041

REACTIONS (2)
  - Herpes zoster cutaneous disseminated [Recovered/Resolved]
  - Herpes zoster disseminated [Recovered/Resolved]
